FAERS Safety Report 24008409 (Version 2)
Quarter: 2024Q4

REPORT INFORMATION
  Report Type: Spontaneous
  Country: US (occurrence: US)
  Receive Date: 20240625
  Receipt Date: 20241120
  Transmission Date: 20250115
  Serious: No
  Sender: AMGEN
  Company Number: US-AMGEN-USASP2024123864

PATIENT
  Age: 67 Year
  Sex: Female

DRUGS (12)
  1. OTEZLA [Suspect]
     Active Substance: APREMILAST
     Indication: Psoriasis
     Dosage: 30 MILLIGRAM, BID
     Route: 048
     Dates: start: 20240221, end: 2024
  2. OTEZLA [Suspect]
     Active Substance: APREMILAST
     Dosage: 30 MILLIGRAM, BID
     Route: 048
     Dates: start: 2024
  3. BUDESONIDE [Concomitant]
     Active Substance: BUDESONIDE
     Dosage: SUS 0.25 MG/2
  4. CYMBALTA [Concomitant]
     Active Substance: DULOXETINE HYDROCHLORIDE
     Dosage: 30 MILLIGRAM
  5. HIZENTRA [Concomitant]
     Active Substance: HUMAN IMMUNOGLOBULIN G
     Dosage: 10/50 ML
  6. NEURONTIN [Concomitant]
     Active Substance: GABAPENTIN
     Dosage: 600 MILLIGRAM
  7. PLAQUENIL [Concomitant]
     Active Substance: HYDROXYCHLOROQUINE SULFATE
     Dosage: 200 MILLIGRAM
  8. PRILOSEC OTC [Concomitant]
     Active Substance: OMEPRAZOLE MAGNESIUM
     Dosage: 20 MILLIGRAM (OTC)
  9. RITUXAN [Concomitant]
     Active Substance: RITUXIMAB
     Dosage: 500 MILLIGRAM
  10. TADALAFIL [Concomitant]
     Active Substance: TADALAFIL
     Dosage: 20 MILLIGRAM
  11. XDEMVY [Concomitant]
     Active Substance: LOTILANER
     Dosage: UNK (OPTH SOL)
  12. SOTYKTU [Concomitant]
     Active Substance: DEUCRAVACITINIB
     Dosage: 6 MILLIGRAM

REACTIONS (4)
  - Therapy non-responder [Unknown]
  - Rash [Not Recovered/Not Resolved]
  - Discomfort [Not Recovered/Not Resolved]
  - Therapy interrupted [Not Recovered/Not Resolved]

NARRATIVE: CASE EVENT DATE: 20240101
